FAERS Safety Report 18090670 (Version 1)
Quarter: 2020Q3

REPORT INFORMATION
  Report Type: Spontaneous
  Country: US (occurrence: US)
  Receive Date: 20200729
  Receipt Date: 20200729
  Transmission Date: 20201103
  Serious: Yes (Other)
  Sender: FDA-Public Use
  Company Number: US-SUN PHARMACEUTICAL INDUSTRIES LTD-2019R1-214811

PATIENT
  Age: 58 Year
  Sex: Male
  Weight: 69 kg

DRUGS (5)
  1. SUGAMMADEX [Suspect]
     Active Substance: SUGAMMADEX
     Indication: NEUROMUSCULAR BLOCKADE REVERSAL
     Dosage: 100 MILLIGRAM (1.4 MG/KG)
     Route: 065
  2. MAGNESIUM [Suspect]
     Active Substance: MAGNESIUM
     Indication: GENERAL ANAESTHESIA
     Dosage: 1 GRAM/HOUR
     Route: 065
  3. DESFLURANE. [Suspect]
     Active Substance: DESFLURANE
     Indication: GENERAL ANAESTHESIA
     Dosage: INFUSION
     Route: 065
  4. VECURONIUM [Suspect]
     Active Substance: VECURONIUM BROMIDE
     Indication: GENERAL ANAESTHESIA
     Dosage: 7 MILLIGRAM (REDOSED 2 MILLIGRAM AFTER 1 HOUR)
     Route: 065
  5. SUGAMMADEX [Suspect]
     Active Substance: SUGAMMADEX
     Dosage: 400 MILLIGRAM (5.8 MG/KG)
     Route: 065

REACTIONS (2)
  - Therapeutic product effect prolonged [Unknown]
  - Potentiating drug interaction [Unknown]
